FAERS Safety Report 10096234 (Version 1)
Quarter: 2014Q2

REPORT INFORMATION
  Report Type: Spontaneous
  Country: NL (occurrence: NL)
  Receive Date: 20140422
  Receipt Date: 20140422
  Transmission Date: 20141212
  Serious: Yes (Hospitalization)
  Sender: FDA-Public Use
  Company Number: NL-BAYER-2014-054497

PATIENT
  Age: 74 Year
  Sex: Female

DRUGS (1)
  1. ULTRAVIST-370 [Suspect]
     Indication: ANGIOGRAM
     Dosage: 90 ML, ONCE
     Route: 042
     Dates: start: 20140408, end: 20140408

REACTIONS (8)
  - Sneezing [None]
  - Pruritus [None]
  - Erythema [None]
  - Oedema mucosal [None]
  - Swelling face [Not Recovered/Not Resolved]
  - Swollen tongue [None]
  - Speech disorder [None]
  - Dysphonia [Not Recovered/Not Resolved]
